FAERS Safety Report 11627902 (Version 1)
Quarter: 2015Q4

REPORT INFORMATION
  Report Type: Spontaneous
  Country: FR (occurrence: FR)
  Receive Date: 20151014
  Receipt Date: 20151014
  Transmission Date: 20160304
  Serious: Yes (Other)
  Sender: FDA-Public Use
  Company Number: FR-PFIZER INC-2015278489

PATIENT
  Age: 60 Year
  Sex: Male
  Weight: 79 kg

DRUGS (1)
  1. XALKORI [Suspect]
     Active Substance: CRIZOTINIB
     Indication: ADENOCARCINOMA
     Dosage: 2X 250 MG
     Dates: start: 201301

REACTIONS (2)
  - Pyelonephritis [Recovered/Resolved with Sequelae]
  - Renal disorder [Unknown]

NARRATIVE: CASE EVENT DATE: 20150413
